FAERS Safety Report 5688319-8 (Version None)
Quarter: 2008Q1

REPORT INFORMATION
  Report Type: 
  Country: None (occurrence: None)
  Receive Date: 20080328
  Receipt Date: 20080328
  Transmission Date: 20080703
  Serious: No
  Sender: FDA-Public Use
  Company Number: None

PATIENT
  Age: 61 Year
  Sex: Male

DRUGS (2)
  1. VARICELLA-ZOSTER IMMUNE GLOBULIN (HUMAN) [Suspect]
     Indication: HERPES ZOSTER
     Dates: start: 20080110, end: 20080124
  2. VARICELLA-ZOSTER IMMUNE GLOBULIN (HUMAN) [Suspect]
     Indication: PROPHYLAXIS
     Dates: start: 20080110, end: 20080124

REACTIONS (1)
  - HERPES ZOSTER [None]
